FAERS Safety Report 9294895 (Version 1)
Quarter: 2013Q2

REPORT INFORMATION
  Report Type: Spontaneous
  Country: US (occurrence: None)
  Receive Date: 20130514
  Receipt Date: 20130514
  Transmission Date: 20140414
  Serious: Yes (Other)
  Sender: FDA-Public Use
  Company Number: US-1198101

PATIENT
  Age: 59 Year
  Sex: Female

DRUGS (3)
  1. VIGAMOX [Suspect]
     Indication: CATARACT OPERATION
     Route: 047
     Dates: start: 20130406, end: 20130416
  2. NEVANAC [Suspect]
     Indication: CATARACT OPERATION
     Route: 047
     Dates: start: 20130406
  3. DUREZOL [Concomitant]
     Indication: CATARACT OPERATION
     Route: 047
     Dates: start: 20130406, end: 20130426

REACTIONS (3)
  - Endophthalmitis [None]
  - Intraocular pressure increased [None]
  - Post procedural complication [None]
